FAERS Safety Report 9515317 (Version 2)
Quarter: 2013Q3

REPORT INFORMATION
  Report Type: Spontaneous
  Country: IN (occurrence: None)
  Receive Date: 20130909
  Receipt Date: 20130913
  Transmission Date: 20140515
  Serious: Yes (Hospitalization)
  Sender: FDA-Public Use
  Company Number: 2013-15306

PATIENT
  Age: 33 Year
  Sex: Male
  Weight: 66 kg

DRUGS (1)
  1. TACROLIMUS [Suspect]
     Indication: PROPHYLAXIS AGAINST TRANSPLANT REJECTION
     Dosage: SINGLE ORAL DOSE, ORAL
     Route: 048
     Dates: start: 20130814, end: 20130814

REACTIONS (5)
  - Typhoid fever [None]
  - Pain [None]
  - Pyrexia [None]
  - Arthralgia [None]
  - Fatigue [None]
